FAERS Safety Report 8276803-2 (Version None)
Quarter: 2012Q2

REPORT INFORMATION
  Report Type: 
  Country: None (occurrence: None)
  Receive Date: 20120412
  Receipt Date: 20120410
  Transmission Date: 20120825
  Serious: No
  Sender: FDA-Public Use
  Company Number: US-PFIZER INC-2012090048

PATIENT
  Sex: Female
  Weight: 71.7 kg

DRUGS (5)
  1. LEXAPRO [Suspect]
     Dosage: 10 MG, DAILY
     Dates: start: 20120401
  2. GLUCOPHAGE [Concomitant]
     Indication: DIABETES MELLITUS
     Dosage: 1000 MG, 2X/DAY
  3. LIPITOR [Suspect]
     Indication: BLOOD CHOLESTEROL INCREASED
     Dosage: 40 MG, DAILY
     Route: 048
  4. LEXAPRO [Suspect]
     Indication: SLEEP DISORDER
     Dosage: 10 MG, DAILY
  5. LIPITOR [Suspect]
     Indication: BLOOD TRIGLYCERIDES INCREASED
     Dosage: 40 MG, DAILY
     Route: 048
     Dates: start: 20120101

REACTIONS (1)
  - URINE ODOUR ABNORMAL [None]
